FAERS Safety Report 8427946-1 (Version None)
Quarter: 2012Q2

REPORT INFORMATION
  Report Type: 
  Country: None (occurrence: None)
  Receive Date: 20120611
  Receipt Date: 20120531
  Transmission Date: 20120825
  Serious: Yes (Hospitalization)
  Sender: FDA-Public Use
  Company Number: US-ASTRAZENECA-2010SE45707

PATIENT
  Age: 57 Year
  Sex: Female
  Weight: 72.6 kg

DRUGS (12)
  1. LEVOTHYROXINE SODIUM [Concomitant]
     Indication: THYROID DISORDER
  2. DULCOLAX [Concomitant]
     Indication: ABDOMINAL DISCOMFORT
  3. ESTRODIAL [Concomitant]
     Indication: HORMONE THERAPY
  4. XANAX [Concomitant]
     Indication: NERVOUSNESS
  5. ALBUTEROL [Concomitant]
     Indication: CHRONIC OBSTRUCTIVE PULMONARY DISEASE
  6. LEURICA [Concomitant]
     Indication: FIBROMYALGIA
  7. NEXIUM [Suspect]
     Route: 048
  8. THEOPHYLLINE [Concomitant]
     Indication: DYSPNOEA
  9. HYDROCODONE [Concomitant]
     Indication: PAIN
  10. LASIX [Concomitant]
     Indication: OEDEMA PERIPHERAL
  11. FLEXERIL [Concomitant]
     Indication: HYPOTONIA
  12. LISINOPRIL [Concomitant]
     Indication: BLOOD PRESSURE

REACTIONS (4)
  - MILK ALLERGY [None]
  - DYSPEPSIA [None]
  - GANGRENE [None]
  - INTENTIONAL DRUG MISUSE [None]
